FAERS Safety Report 7270626-9 (Version None)
Quarter: 2011Q1

REPORT INFORMATION
  Report Type: 
  Country: None (occurrence: None)
  Receive Date: 20110202
  Receipt Date: 20110125
  Transmission Date: 20110831
  Serious: Yes (Hospitalization)
  Sender: FDA-Public Use
  Company Number: A0889012A

PATIENT
  Age: 44 Year
  Sex: Female
  Weight: 72.7 kg

DRUGS (8)
  1. XANAX [Concomitant]
     Dosage: .25MG AS REQUIRED
     Route: 048
  2. CELEXA [Concomitant]
     Dosage: 10MG PER DAY
     Route: 048
  3. COMPAZINE [Concomitant]
     Dosage: 10MG AS REQUIRED
     Route: 048
  4. TYKERB [Suspect]
     Indication: PRODUCT USED FOR UNKNOWN INDICATION
     Dosage: 1250MG PER DAY
     Route: 048
     Dates: start: 20090713
  5. NEXIUM [Concomitant]
     Dosage: 40MG PER DAY
     Route: 048
  6. LOPRESSOR [Concomitant]
     Dosage: 25MG TWICE PER DAY
     Route: 048
  7. KEPPRA [Concomitant]
     Dosage: 750MG TWICE PER DAY
     Route: 048
  8. TOPAMAX [Concomitant]
     Dosage: 125MG TWICE PER DAY
     Route: 048

REACTIONS (3)
  - HOSPITALISATION [None]
  - MALAISE [None]
  - DRUG ADMINISTRATION ERROR [None]
